FAERS Safety Report 17829425 (Version 1)
Quarter: 2020Q2

REPORT INFORMATION
  Report Type: Spontaneous
  Country: US (occurrence: US)
  Receive Date: 20200527
  Receipt Date: 20200527
  Transmission Date: 20200714
  Serious: No
  Sender: FDA-Public Use
  Company Number: US-TEVA-2020-US-1240570

PATIENT
  Age: 29 Year
  Sex: Male
  Weight: 54.43 kg

DRUGS (2)
  1. GRANIX [Suspect]
     Active Substance: TBO-FILGRASTIM
     Route: 065
  2. GRANIX [Suspect]
     Active Substance: TBO-FILGRASTIM
     Route: 065
     Dates: start: 20200516

REACTIONS (5)
  - Bone pain [Unknown]
  - Pain in extremity [Unknown]
  - Disorientation [Unknown]
  - Product storage error [Unknown]
  - Pain [Unknown]
